FAERS Safety Report 9857573 (Version 1)
Quarter: 2014Q1

REPORT INFORMATION
  Report Type: Spontaneous
  Country: BR (occurrence: BR)
  Receive Date: 20140131
  Receipt Date: 20140131
  Transmission Date: 20141002
  Serious: Yes (Other)
  Sender: FDA-Public Use
  Company Number: PHHY2014BR008057

PATIENT
  Age: 59 Year
  Sex: Female

DRUGS (11)
  1. RIFAMPICIN [Suspect]
     Indication: PULMONARY TUBERCULOSIS
     Dosage: 600 MG, PER DAY
  2. WARFARIN [Interacting]
     Indication: ATRIAL FIBRILLATION
     Dosage: 52.5 MG, PER WEEK
  3. WARFARIN [Interacting]
     Dosage: 45 MG, PER WEEK
  4. WARFARIN [Interacting]
     Dosage: 80 MG, PER WEEK
  5. WARFARIN [Interacting]
     Dosage: 77.5 MG, UNK
  6. WARFARIN [Interacting]
     Dosage: 37.5 MG, UNK
  7. PYRAZINAMIDE [Concomitant]
     Indication: PULMONARY TUBERCULOSIS
     Dosage: 2 G, PER DAY
  8. ISONIAZID [Concomitant]
     Indication: PULMONARY TUBERCULOSIS
     Dosage: 400 MG, PER DAY
  9. FERROUS SULFATE [Concomitant]
  10. ENALAPRIL [Concomitant]
  11. HYDROCHLOROTHIAZIDE [Concomitant]

REACTIONS (5)
  - Haemorrhage [Recovering/Resolving]
  - Haematuria [Unknown]
  - International normalised ratio increased [Recovering/Resolving]
  - Drug interaction [Unknown]
  - Anticoagulation drug level below therapeutic [Unknown]
